FAERS Safety Report 12900414 (Version 1)
Quarter: 2016Q4

REPORT INFORMATION
  Report Type: Report from Study
  Country: FR (occurrence: FR)
  Receive Date: 20161101
  Receipt Date: 20161101
  Transmission Date: 20170207
  Serious: Yes (Other)
  Sender: FDA-Public Use
  Company Number: FR-ACTELION-A-CH2016-138538

PATIENT
  Age: 25 Year
  Sex: Male

DRUGS (1)
  1. VALCHLOR [Suspect]
     Active Substance: MECHLORETHAMINE
     Indication: MYCOSIS FUNGOIDES STAGE I
     Dosage: UNK
     Route: 061
     Dates: start: 20150422

REACTIONS (2)
  - Pregnancy of partner [Unknown]
  - Abortion induced [Unknown]

NARRATIVE: CASE EVENT DATE: 20160713
